FAERS Safety Report 7804055-3 (Version None)
Quarter: 2011Q4

REPORT INFORMATION
  Report Type: 
  Country: None (occurrence: None)
  Receive Date: 20111010
  Receipt Date: 20110929
  Transmission Date: 20120403
  Serious: Yes (Hospitalization)
  Sender: FDA-Public Use
  Company Number: US-VERTEX PHARMACEUTICALS INC.-AE-2011-001898

PATIENT
  Age: 54 Year
  Sex: Male

DRUGS (3)
  1. RIBAVIRIN [Concomitant]
     Indication: HEPATITIS C
  2. PEGINTERFERON [Concomitant]
     Indication: HEPATITIS C
  3. INCIVEK [Suspect]
     Indication: HEPATITIS C
     Route: 048

REACTIONS (2)
  - ASCITES [None]
  - MALAISE [None]
